FAERS Safety Report 18871515 (Version 2)
Quarter: 2021Q2

REPORT INFORMATION
  Report Type: Spontaneous
  Country: US (occurrence: US)
  Receive Date: 20210210
  Receipt Date: 20210409
  Transmission Date: 20210717
  Serious: No
  Sender: FDA-Public Use
  Company Number: US-ENCUBE-000036

PATIENT
  Age: 55 Year
  Sex: Female

DRUGS (1)
  1. 0.05% CLOBETASOL PROPIONATE [Suspect]
     Active Substance: CLOBETASOL PROPIONATE
     Indication: PSORIASIS
     Dosage: 0.05%
     Route: 061
     Dates: start: 20210105, end: 20210125

REACTIONS (2)
  - Skin irritation [Recovered/Resolved]
  - Pruritus [Recovered/Resolved]
